FAERS Safety Report 23752249 (Version 1)
Quarter: 2024Q2

REPORT INFORMATION
  Report Type: Spontaneous
  Country: JP (occurrence: None)
  Receive Date: 20240417
  Receipt Date: 20240417
  Transmission Date: 20240716
  Serious: Yes (Hospitalization, Other)
  Sender: FDA-Public Use
  Company Number: 2024A088032

PATIENT
  Age: 41 Year
  Sex: Female
  Weight: 61 kg

DRUGS (5)
  1. FASLODEX [Suspect]
     Active Substance: FULVESTRANT
     Indication: Breast cancer female
     Dosage: 500.0MG UNKNOWN
     Route: 030
     Dates: start: 20231003
  2. VERZENIO [Suspect]
     Active Substance: ABEMACICLIB
     Dosage: DOSE UNKNOWN
     Route: 048
  3. MIYA-BM [Concomitant]
     Active Substance: CLOSTRIDIUM BUTYRICUM SPORES STRAIN M-55
     Dosage: DOSE UNKNOWN
     Route: 048
  4. URSO [Concomitant]
     Active Substance: URSODIOL
     Dosage: DOSE UNKNOWN
     Route: 048
  5. LOPERAMIDE HYDROCHLORIDE [Concomitant]
     Active Substance: LOPERAMIDE HYDROCHLORIDE
     Dosage: DOSE UNKNOWN
     Route: 048

REACTIONS (3)
  - Metastases to central nervous system [Unknown]
  - Epilepsy [Unknown]
  - Injection site necrosis [Recovering/Resolving]

NARRATIVE: CASE EVENT DATE: 20231226
